FAERS Safety Report 5106414-9 (Version None)
Quarter: 2006Q3

REPORT INFORMATION
  Report Type: 
  Country: None (occurrence: None)
  Receive Date: 20060918
  Receipt Date: 20060823
  Transmission Date: 20061208
  Serious: Yes (Other)
  Sender: FDA-Public Use
  Company Number: PHBS2006ZA13008

PATIENT
  Sex: Female
  Weight: 72.6 kg

DRUGS (3)
  1. IBANDRONIC ACID [Concomitant]
     Dosage: 6 MG EVERY 4 WEEKS
     Route: 042
  2. FEMARA [Suspect]
     Indication: BREAST CANCER METASTATIC
     Dosage: 2.5 MG/DAY
     Route: 048
     Dates: start: 20060206
  3. DIAZEPAM [Concomitant]
     Dosage: 10 MG, QHS

REACTIONS (1)
  - HYPOACUSIS [None]
